FAERS Safety Report 5795131-8 (Version None)
Quarter: 2008Q2

REPORT INFORMATION
  Report Type: 
  Country: None (occurrence: None)
  Receive Date: 20080601
  Receipt Date: 20080128
  Transmission Date: 20081010
  Serious: No
  Sender: FDA-Public Use
  Company Number: US200801006309

PATIENT
  Age: 40 Year
  Sex: Male
  Weight: 160.5 kg

DRUGS (2)
  1. BYETTA [Suspect]
     Indication: INSULIN-REQUIRING TYPE 2 DIABETES MELLITUS
     Dosage: 5 UG, 2/D, SUBCUTANEOUS
     Route: 058
     Dates: start: 20080126
  2. LANTUS [Concomitant]

REACTIONS (2)
  - NAUSEA [None]
  - URINE OUTPUT DECREASED [None]
